FAERS Safety Report 4363951-2 (Version None)
Quarter: 2004Q2

REPORT INFORMATION
  Report Type: 
  Country: None (occurrence: None)
  Receive Date: 20040525
  Receipt Date: 20040513
  Transmission Date: 20050107
  Serious: Yes (Other)
  Sender: FDA-Public Use
  Company Number: PHNU2004DE01832

PATIENT
  Age: 51 Year
  Sex: Female

DRUGS (7)
  1. ESTRADIOL [Suspect]
     Dates: end: 20040301
  2. CORTISONE [Concomitant]
  3. AZATHIOPRINE [Concomitant]
  4. SALOFALK ^FALK^ [Concomitant]
  5. BETA BLOCKING AGENTS [Concomitant]
  6. ACE INHIBITOR NOS [Concomitant]
  7. MINERALS NOS [Concomitant]

REACTIONS (1)
  - BLADDER TUMOUR RESECTION [None]
